FAERS Safety Report 6255062-6 (Version None)
Quarter: 2009Q3

REPORT INFORMATION
  Report Type: 
  Country: None (occurrence: None)
  Receive Date: 20090702
  Receipt Date: 20090424
  Transmission Date: 20100115
  Serious: Yes (Life-Threatening)
  Sender: FDA-Public Use
  Company Number: DE-AVENTIS-200911101DE

PATIENT
  Age: 76 Year
  Sex: Male

DRUGS (9)
  1. TAXOTERE [Suspect]
     Route: 042
     Dates: start: 20090420, end: 20090420
  2. CARVEDILOL [Suspect]
     Dosage: DOSE QUANTITY: 0.5
     Route: 048
  3. DIGITALIS GLYCOSIDES [Suspect]
     Dosage: DOSE: NOT REPORTED
     Route: 048
  4. CORVATON - SLOW RELEASE [Concomitant]
     Route: 048
  5. TROMCARDIN                         /00196901/ [Concomitant]
     Dosage: DOSE: NOT REPORTED
     Route: 048
  6. CRATAEGUS [Concomitant]
     Dosage: DOSE: NOT REPORTED
     Route: 048
  7. CELEBREX [Concomitant]
     Dosage: DOSE: NOT REPORTED
     Route: 048
  8. RIFUN [Concomitant]
     Dosage: DOSE: NOT REPORTED
     Route: 048
  9. SPIRO COMP. [Concomitant]
     Indication: OEDEMA DUE TO CARDIAC DISEASE
     Dosage: DOSE: 3 TABLETS PER WEEK
     Route: 048

REACTIONS (3)
  - ATRIOVENTRICULAR BLOCK COMPLETE [None]
  - BRADYCARDIA [None]
  - SYNCOPE [None]
